FAERS Safety Report 13876872 (Version 2)
Quarter: 2017Q3

REPORT INFORMATION
  Report Type: Spontaneous
  Country: US (occurrence: US)
  Receive Date: 20170817
  Receipt Date: 20170818
  Transmission Date: 20171127
  Serious: No
  Sender: FDA-Public Use
  Company Number: US-ELI_LILLY_AND_COMPANY-US201708006144

PATIENT
  Age: 62 Year
  Sex: Female

DRUGS (1)
  1. FORTEO [Suspect]
     Active Substance: TERIPARATIDE
     Indication: OSTEOPOROSIS
     Dosage: UNK, UNKNOWN
     Route: 058
     Dates: start: 20170809

REACTIONS (12)
  - Injection site erythema [Recovered/Resolved]
  - Chills [Recovered/Resolved]
  - Tremor [Recovered/Resolved]
  - Muscle spasms [Recovered/Resolved]
  - Injection site haemorrhage [Recovered/Resolved]
  - Hyperhidrosis [Recovered/Resolved]
  - Pain of skin [Not Recovered/Not Resolved]
  - Abdominal pain [Recovered/Resolved]
  - Injection site pain [Recovered/Resolved]
  - Diarrhoea haemorrhagic [Not Recovered/Not Resolved]
  - Haematochezia [Unknown]
  - Headache [Not Recovered/Not Resolved]

NARRATIVE: CASE EVENT DATE: 20170817
